FAERS Safety Report 16184437 (Version 1)
Quarter: 2019Q2

REPORT INFORMATION
  Report Type: Spontaneous
  Country: US (occurrence: US)
  Receive Date: 20190411
  Receipt Date: 20190411
  Transmission Date: 20190711
  Serious: No
  Sender: FDA-Public Use
  Company Number: US-ASTELLAS-2019US013340

PATIENT
  Sex: Male

DRUGS (1)
  1. PROGRAF [Suspect]
     Active Substance: TACROLIMUS\TACROLIMUS ANHYDROUS
     Indication: HEART TRANSPLANT
     Dosage: 6 MG IN THE MORNING AND 7 MG AT NIGHT, TWICE DAILY
     Route: 065
     Dates: start: 201609

REACTIONS (4)
  - Cough [Unknown]
  - Rhinorrhoea [Unknown]
  - Productive cough [Unknown]
  - Nasopharyngitis [Not Recovered/Not Resolved]
